FAERS Safety Report 6714916-4 (Version None)
Quarter: 2010Q2

REPORT INFORMATION
  Report Type: 
  Country: None (occurrence: None)
  Receive Date: 20100506
  Receipt Date: 20100506
  Transmission Date: 20101027
  Serious: Yes (Hospitalization, Other)
  Sender: FDA-Public Use
  Company Number: None

PATIENT
  Age: 13 Month
  Sex: Female
  Weight: 10.2059 kg

DRUGS (2)
  1. CONCENTRATED TYLENOL INFANT DROPS [Suspect]
     Indication: NASOPHARYNGITIS
     Dosage: 1OZ PO
     Route: 048
     Dates: start: 20091001, end: 20100405
  2. CONCENTRATED MOTRIN INFANTS DROPS [Suspect]
     Indication: NASOPHARYNGITIS
     Dosage: 1OZ PO
     Route: 048
     Dates: start: 20091013, end: 20100405

REACTIONS (3)
  - APNOEIC ATTACK [None]
  - DRUG TOXICITY [None]
  - EPILEPSY [None]
